FAERS Safety Report 21350753 (Version 1)
Quarter: 2022Q3

REPORT INFORMATION
  Report Type: Spontaneous
  Country: FR (occurrence: FR)
  Receive Date: 20220919
  Receipt Date: 20220919
  Transmission Date: 20221027
  Serious: Yes (Life-Threatening, Other)
  Sender: FDA-Public Use
  Company Number: None

PATIENT
  Age: 1 Day
  Sex: Female
  Weight: 3.09 kg

DRUGS (2)
  1. ALPROSTADIL [Suspect]
     Active Substance: ALPROSTADIL
     Indication: Ebstein^s anomaly
     Dosage: 11 NG/KG/MIN
     Route: 042
     Dates: start: 20210726
  2. CAFFEINE CITRATE [Concomitant]
     Active Substance: CAFFEINE CITRATE
     Indication: Premedication
     Dosage: UNK
     Route: 042
     Dates: start: 20210726

REACTIONS (1)
  - Infantile apnoea [Recovered/Resolved]

NARRATIVE: CASE EVENT DATE: 20210726
